FAERS Safety Report 4991496-5 (Version None)
Quarter: 2006Q2

REPORT INFORMATION
  Report Type: 
  Country: None (occurrence: None)
  Receive Date: 20060502
  Receipt Date: 20060502
  Transmission Date: 20061013
  Serious: Yes (Hospitalization)
  Sender: FDA-Public Use
  Company Number: None

PATIENT
  Age: 63 Year
  Sex: Female
  Weight: 52.5 kg

DRUGS (17)
  1. ZYVOX [Suspect]
     Indication: WOUND INFECTION STAPHYLOCOCCAL
     Dosage: 600 MG Q12HOURS PO
     Route: 048
     Dates: start: 20060224, end: 20060310
  2. PROGRAF [Concomitant]
  3. CELLCEPT [Concomitant]
  4. PREDNISONE TAB [Concomitant]
  5. MEPRON [Concomitant]
  6. NEXIUM [Concomitant]
  7. MVI W/IRON [Concomitant]
  8. OSCAL W/D [Concomitant]
  9. CARDIZEM CD [Concomitant]
  10. PRAVACHOL [Concomitant]
  11. IRON [Concomitant]
  12. HYDRALAZINE HCL [Concomitant]
  13. SYNTHROID [Concomitant]
  14. ATENOLOL [Concomitant]
  15. NYSTATIN [Concomitant]
  16. NPH INSULIN [Concomitant]
  17. ARANESP [Concomitant]

REACTIONS (1)
  - PANCYTOPENIA [None]
